FAERS Safety Report 9953968 (Version 2)
Quarter: 2014Q1

REPORT INFORMATION
  Report Type: Spontaneous
  Country: US (occurrence: US)
  Receive Date: 20140304
  Receipt Date: 20140304
  Transmission Date: 20141002
  Serious: No
  Sender: FDA-Public Use
  Company Number: US-AMGEN-USASP2013081299

PATIENT
  Age: 53 Year
  Sex: Female
  Weight: 97.96 kg

DRUGS (9)
  1. ENBREL [Suspect]
     Indication: RHEUMATOID ARTHRITIS
     Dosage: 50 MG, QWK
     Route: 058
  2. ASA [Concomitant]
     Dosage: 81 MG, UNK
  3. PREVACID [Concomitant]
     Dosage: 30 MG, UNK
  4. LIPITOR [Concomitant]
     Dosage: 10 MG, UNK
  5. ESTRATEST [Concomitant]
     Dosage: UNK
  6. TRAZODONE [Concomitant]
     Dosage: 50 MG, UNK
  7. VICODIN [Concomitant]
     Dosage: 5-500MG
  8. METHOTREXATE [Concomitant]
     Dosage: 2.5 MG, UNK
  9. FOLIC ACID [Concomitant]
     Dosage: 1 MG, UNK

REACTIONS (4)
  - Pain in extremity [Unknown]
  - Spinal column stenosis [Unknown]
  - Local swelling [Unknown]
  - Rheumatoid arthritis [Unknown]
